FAERS Safety Report 9903576 (Version 2)
Quarter: 2014Q1

REPORT INFORMATION
  Report Type: Spontaneous
  Country: US (occurrence: US)
  Receive Date: 20140217
  Receipt Date: 20140304
  Transmission Date: 20141002
  Serious: No
  Sender: FDA-Public Use
  Company Number: US-009507513-1402USA008091

PATIENT
  Sex: Female

DRUGS (5)
  1. OXYTROL FOR WOMEN [Suspect]
     Indication: BLADDER DISORDER
     Dosage: UNK, UNKNOWN
     Route: 062
     Dates: end: 201401
  2. OXYTROL FOR WOMEN [Suspect]
     Indication: INCONTINENCE
  3. LISINOPRIL [Concomitant]
     Indication: HYPERTENSION
     Dosage: UNK, UNKNOWN
  4. ATENOLOL [Concomitant]
     Indication: HYPERTENSION
     Dosage: UNK, UNKNOWN
  5. HYDROCHLOROTHIAZIDE [Concomitant]
     Indication: HYPERTENSION
     Dosage: UNK, UNKNOWN

REACTIONS (1)
  - Drug ineffective [Unknown]
